FAERS Safety Report 6415976-0 (Version None)
Quarter: 2009Q4

REPORT INFORMATION
  Report Type: 
  Country: None (occurrence: None)
  Receive Date: 20091027
  Receipt Date: 20091022
  Transmission Date: 20100525
  Serious: Yes (Hospitalization)
  Sender: FDA-Public Use
  Company Number: Z0001649A

PATIENT
  Sex: Female
  Weight: 40.2 kg

DRUGS (3)
  1. PAROXETINE HCL [Suspect]
     Indication: MAJOR DEPRESSION
     Route: 048
     Dates: start: 20090623, end: 20090905
  2. MYSLEE [Suspect]
     Indication: MAJOR DEPRESSION
     Dosage: 80MG SINGLE DOSE
     Route: 048
     Dates: start: 20090906, end: 20090906
  3. CALONAL [Suspect]
     Indication: MAJOR DEPRESSION
     Dosage: 500MG SINGLE DOSE
     Route: 048
     Dates: start: 20090906, end: 20090906

REACTIONS (7)
  - AGITATION [None]
  - ANXIETY [None]
  - DIZZINESS [None]
  - DRUG TOXICITY [None]
  - OVERDOSE [None]
  - SUICIDAL IDEATION [None]
  - TREMOR [None]
